FAERS Safety Report 9285356 (Version 2)
Quarter: 2013Q2

REPORT INFORMATION
  Report Type: Report from Study
  Country: IT (occurrence: IT)
  Receive Date: 20130513
  Receipt Date: 20130529
  Transmission Date: 20140414
  Serious: Yes (Death)
  Sender: FDA-Public Use
  Company Number: IT-ASTELLAS-2013EU004110

PATIENT
  Sex: Female

DRUGS (2)
  1. MICAFUNGIN INJECTION [Suspect]
     Dosage: 80 MG, UNKNOWN/D
     Route: 065
     Dates: start: 20120104, end: 20120115
  2. FLUCONAZOL [Concomitant]
     Dosage: 200 MG, UNKNOWN/D
     Route: 042
     Dates: start: 20111230, end: 20120104

REACTIONS (1)
  - Death [Fatal]
